FAERS Safety Report 10443969 (Version 1)
Quarter: 2014Q3

REPORT INFORMATION
  Report Type: Spontaneous
  Country: US (occurrence: US)
  Receive Date: 20140910
  Receipt Date: 20140910
  Transmission Date: 20150326
  Serious: No
  Sender: FDA-Public Use
  Company Number: US-TARO-2014P1002991

PATIENT
  Age: 80 Year
  Sex: Female
  Weight: 72.58 kg

DRUGS (20)
  1. WARFARIN SODIUM TABLETS USP 1MG [Suspect]
     Active Substance: WARFARIN SODIUM
     Dosage: 2 MG
     Route: 048
     Dates: start: 201401
  2. ALPHAGAN P [Concomitant]
     Active Substance: BRIMONIDINE TARTRATE
  3. WARFARIN SODIUM TABLETS USP 1MG [Suspect]
     Active Substance: WARFARIN SODIUM
     Route: 048
     Dates: start: 201401
  4. MAGNESIUM [Suspect]
     Active Substance: MAGNESIUM
     Dosage: QD
     Dates: start: 201402
  5. IRBESARTAN. [Concomitant]
     Active Substance: IRBESARTAN
  6. LOVAZA [Concomitant]
     Active Substance: OMEGA-3-ACID ETHYL ESTERS
  7. XALATAN [Concomitant]
     Active Substance: LATANOPROST
     Dosage: 1 QD
  8. WARFARIN SODIUM TABLETS USP 1MG [Suspect]
     Active Substance: WARFARIN SODIUM
     Indication: ATRIAL FIBRILLATION
     Dosage: 2 MG
     Route: 048
     Dates: start: 2005, end: 201401
  9. WARFARIN SODIUM TABLETS USP 1MG [Suspect]
     Active Substance: WARFARIN SODIUM
     Route: 048
     Dates: start: 2014
  10. LOMOTIL [Concomitant]
     Active Substance: ATROPINE SULFATE\DIPHENOXYLATE HYDROCHLORIDE
     Dosage: PRN
  11. WARFARIN SODIUM TABLETS USP 1MG [Suspect]
     Active Substance: WARFARIN SODIUM
     Route: 048
     Dates: start: 2005, end: 201401
  12. LEVEMIR [Concomitant]
     Active Substance: INSULIN DETEMIR
  13. LOVASTATIN. [Concomitant]
     Active Substance: LOVASTATIN
  14. METFORMIN [Concomitant]
     Active Substance: METFORMIN HYDROCHLORIDE
  15. LEVOTHYROXINE [Suspect]
     Active Substance: LEVOTHYROXINE
  16. CHLORTHALIDONE. [Concomitant]
     Active Substance: CHLORTHALIDONE
  17. LEVOTHYROXINE [Suspect]
     Active Substance: LEVOTHYROXINE
     Dates: start: 201402
  18. GLYBURIDE. [Concomitant]
     Active Substance: GLYBURIDE
  19. DIGOXIN. [Concomitant]
     Active Substance: DIGOXIN
  20. WARFARIN SODIUM TABLETS USP 1MG [Suspect]
     Active Substance: WARFARIN SODIUM
     Dosage: 2 MG
     Route: 048
     Dates: start: 2014

REACTIONS (1)
  - International normalised ratio fluctuation [Not Recovered/Not Resolved]

NARRATIVE: CASE EVENT DATE: 201401
